FAERS Safety Report 15858228 (Version 1)
Quarter: 2019Q1

REPORT INFORMATION
  Report Type: Spontaneous
  Country: US (occurrence: US)
  Receive Date: 20190123
  Receipt Date: 20190123
  Transmission Date: 20190417
  Serious: Yes (Other)
  Sender: FDA-Public Use
  Company Number: US-COVIS PHARMA B.V.-2019COV00036

PATIENT
  Sex: Male
  Weight: 5.44 kg

DRUGS (17)
  1. PRILOSEC [Suspect]
     Active Substance: OMEPRAZOLE MAGNESIUM
     Dosage: 10 MG, 1X/DAY
     Route: 048
  2. SYNAGIS [Suspect]
     Active Substance: PALIVIZUMAB
     Indication: CHRONIC RESPIRATORY FAILURE
     Dosage: UNK, 1X/MONTH
     Route: 030
     Dates: start: 201802
  3. RANITIDINE. [Concomitant]
     Active Substance: RANITIDINE
     Dosage: 2 ML, 2X/DAY
  4. KEPPRA [Concomitant]
     Active Substance: LEVETIRACETAM
     Dosage: .5 ML, 1X/DAY
  5. IBUPROFEN. [Concomitant]
     Active Substance: IBUPROFEN
  6. SODIUM CHLORIDE. [Concomitant]
     Active Substance: SODIUM CHLORIDE
     Dosage: 15.2 MEQ, 2X/DAY
  7. ATROVENT [Concomitant]
     Active Substance: IPRATROPIUM BROMIDE
     Dosage: 17 ?G, 2X/DAY
  8. BENADRYL ALLERGY [Concomitant]
     Active Substance: DIPHENHYDRAMINE HYDROCHLORIDE
  9. ERYTHROMYCIN. [Concomitant]
     Active Substance: ERYTHROMYCIN
  10. OMEPRAZOLE. [Concomitant]
     Active Substance: OMEPRAZOLE
  11. SYNAGIS [Suspect]
     Active Substance: PALIVIZUMAB
     Indication: PRODUCT USE IN UNAPPROVED INDICATION
  12. CHLOROTHIAZIDE. [Concomitant]
     Active Substance: CHLOROTHIAZIDE
  13. HYDROCORTISONE. [Concomitant]
     Active Substance: HYDROCORTISONE
  14. ACETAMINOPHEN. [Concomitant]
     Active Substance: ACETAMINOPHEN
  15. IPRATROPIUM [Concomitant]
     Active Substance: IPRATROPIUM
  16. NYSTATIN. [Concomitant]
     Active Substance: NYSTATIN
  17. TRIAMCINOLONE [Concomitant]
     Active Substance: TRIAMCINOLONE
     Dosage: UNK, 2X/DAY
     Route: 061

REACTIONS (26)
  - Failure to thrive [Unknown]
  - Hypersensitivity [Unknown]
  - Heart rate increased [Unknown]
  - Poor feeding infant [Unknown]
  - Cough [Unknown]
  - Rhinovirus infection [Unknown]
  - Hyperventilation [Unknown]
  - General physical health deterioration [Unknown]
  - Aerophagia [Unknown]
  - Stereotypy [Unknown]
  - Eustachian tube dysfunction [Unknown]
  - Acquired epiblepharon [Unknown]
  - Lung disorder [Unknown]
  - Tachycardia [Unknown]
  - Rhinorrhoea [Unknown]
  - Shunt malfunction [Unknown]
  - Hypoventilation [Unknown]
  - Gastrooesophageal reflux disease [Unknown]
  - Cerebral cyst [Unknown]
  - Malnutrition [Unknown]
  - Dysphagia [Unknown]
  - Astigmatism [Unknown]
  - Strabismus [Unknown]
  - Respiratory rate increased [Unknown]
  - Atelectasis [Unknown]
  - Milk allergy [Unknown]
